FAERS Safety Report 26056280 (Version 2)
Quarter: 2025Q4

REPORT INFORMATION
  Report Type: Spontaneous
  Country: US (occurrence: US)
  Receive Date: 20251118
  Receipt Date: 20251126
  Transmission Date: 20260117
  Serious: Yes (Other)
  Sender: TEVA
  Company Number: US-TEVA-VS-3389978

PATIENT
  Age: 70 Year
  Sex: Female

DRUGS (10)
  1. PREDNISOLONE [Suspect]
     Active Substance: PREDNISOLONE
     Indication: Inflammation
     Route: 048
     Dates: end: 2024
  2. ACYCLOVIR [Concomitant]
     Active Substance: ACYCLOVIR
     Indication: Evidence based treatment
     Route: 065
     Dates: start: 2024
  3. FLUCONAZOLE [Concomitant]
     Active Substance: FLUCONAZOLE
     Indication: Cutaneous coccidioidomycosis
     Route: 048
     Dates: start: 2024
  4. METRONIDAZOLE [Concomitant]
     Active Substance: METRONIDAZOLE
     Indication: Rosacea
     Route: 061
     Dates: start: 2024
  5. CEPHALEXIN [Concomitant]
     Active Substance: CEPHALEXIN
     Indication: Evidence based treatment
     Route: 048
     Dates: start: 2024
  6. DOXYCYCLINE [Interacting]
     Active Substance: DOXYCYCLINE
     Indication: Rosacea
     Route: 065
     Dates: start: 2024
  7. CLINDAMYCIN [Concomitant]
     Active Substance: CLINDAMYCIN
     Indication: Evidence based treatment
     Route: 061
     Dates: start: 2024
  8. CLOTRIMAZOLE [Suspect]
     Active Substance: CLOTRIMAZOLE
     Indication: Antifungal treatment
     Route: 061
     Dates: start: 2024
  9. VANDETANIB [Interacting]
     Active Substance: VANDETANIB
     Indication: Medullary thyroid cancer
     Route: 065
  10. LEVOFLOXACIN [Concomitant]
     Active Substance: LEVOFLOXACIN
     Indication: Evidence based treatment
     Route: 048
     Dates: start: 2024

REACTIONS (7)
  - Cutaneous coccidioidomycosis [Recovering/Resolving]
  - Condition aggravated [Recovering/Resolving]
  - Drug ineffective [Unknown]
  - Rebound effect [Recovering/Resolving]
  - Skin hyperpigmentation [Not Recovered/Not Resolved]
  - Drug interaction [Not Recovered/Not Resolved]
  - Skin lesion inflammation [Recovering/Resolving]

NARRATIVE: CASE EVENT DATE: 20240101
